FAERS Safety Report 9184861 (Version 1)
Quarter: 2013Q1

REPORT INFORMATION
  Report Type: Spontaneous
  Country: US (occurrence: US)
  Receive Date: 20130325
  Receipt Date: 20130325
  Transmission Date: 20140127
  Serious: Yes (Other)
  Sender: FDA-Public Use
  Company Number: US-BRISTOL-MYERS SQUIBB COMPANY-16507394

PATIENT
  Sex: Male

DRUGS (1)
  1. ERBITUX [Suspect]

REACTIONS (5)
  - Blister [Unknown]
  - Stomatitis [Unknown]
  - Diarrhoea [Unknown]
  - Pruritus generalised [Unknown]
  - Abdominal pain upper [Unknown]
